FAERS Safety Report 7659466-6 (Version None)
Quarter: 2011Q3

REPORT INFORMATION
  Report Type: 
  Country: None (occurrence: None)
  Receive Date: 20110805
  Receipt Date: 20110727
  Transmission Date: 20111222
  Serious: Yes (Hospitalization)
  Sender: FDA-Public Use
  Company Number: CA-JNJFOC-20110800381

PATIENT
  Sex: Female
  Weight: 40.6 kg

DRUGS (1)
  1. REMICADE [Suspect]
     Indication: PRODUCT USED FOR UNKNOWN INDICATION
     Route: 042

REACTIONS (3)
  - OVARIAN CYST RUPTURED [None]
  - GROIN ABSCESS [None]
  - INFECTIOUS PERITONITIS [None]
